FAERS Safety Report 22312312 (Version 1)
Quarter: 2023Q2

REPORT INFORMATION
  Report Type: Spontaneous
  Country: US (occurrence: US)
  Receive Date: 20230512
  Receipt Date: 20230512
  Transmission Date: 20230722
  Serious: No
  Sender: FDA-Public Use
  Company Number: US-BRISTOL-MYERS SQUIBB COMPANY-2023-064125

PATIENT
  Age: 61 Year
  Sex: Female

DRUGS (1)
  1. ONUREG [Suspect]
     Active Substance: AZACITIDINE
     Indication: Product used for unknown indication
     Dosage: FREQUENCY : TAKE 1 TABLET BY MOUTH ONCE DAILY ON DAYS 1 - 14 OF A 35 DAY CYCLE
     Route: 048

REACTIONS (1)
  - Intentional product use issue [Unknown]
